FAERS Safety Report 5958746-X (Version None)
Quarter: 2008Q4

REPORT INFORMATION
  Report Type: 
  Country: None (occurrence: None)
  Receive Date: 20081119
  Receipt Date: 20081111
  Transmission Date: 20090506
  Serious: No
  Sender: FDA-Public Use
  Company Number: US-B.I. PHARMACEUTICALS,INC./RIDGEFIELD-2008-BP-17181BP

PATIENT
  Sex: Male

DRUGS (7)
  1. SPIRIVA [Suspect]
     Indication: CHRONIC OBSTRUCTIVE PULMONARY DISEASE
  2. SPIRIVA [Suspect]
     Indication: ASTHMA
  3. SPIRIVA [Suspect]
     Indication: BRONCHITIS CHRONIC
  4. SPIRIVA [Suspect]
     Indication: DYSPNOEA
  5. SPIRIVA [Suspect]
     Indication: EMPHYSEMA
  6. SPIRIVA [Suspect]
     Indication: LUNG DISORDER
  7. ALBUTEROL SULFATE [Concomitant]
     Indication: DYSPNOEA

REACTIONS (3)
  - NERVOUSNESS [None]
  - SOMNOLENCE [None]
  - URTICARIA [None]
